FAERS Safety Report 19942101 (Version 1)
Quarter: 2021Q4

REPORT INFORMATION
  Report Type: Other
  Country: DE (occurrence: DE)
  Receive Date: 20211012
  Receipt Date: 20211012
  Transmission Date: 20220304
  Serious: No
  Sender: FDA-Public Use
  Company Number: None

PATIENT
  Age: 80 Year
  Sex: Female
  Weight: 70 kg

DRUGS (3)
  1. LEVETIRACETAM [Suspect]
     Active Substance: LEVETIRACETAM
     Indication: Epilepsy
     Dosage: 250 MILLIGRAM, BID (FROM 4.9. IN THE MORNING AND IN THE EVENING 1 X 250MG EACH, FROM 18.9. DOUBLE AM
     Route: 048
     Dates: start: 20210904
  2. LEVETIRACETAM [Suspect]
     Active Substance: LEVETIRACETAM
     Dosage: 500 MILLIGRAM, BID (FROM 18.9. DOUBLE AMOUNT, CURRENTLY TOTAL 750 MG)
     Route: 048
     Dates: start: 20210918
  3. LEVETIRACETAM [Suspect]
     Active Substance: LEVETIRACETAM
     Dosage: 625 MILLIGRAM, QD (AFTER CALLING THE DOCTOR CURRENTLY 1.0 X 250 MG LEVETIRACETAM IN THE MORNING AND
     Route: 048
     Dates: start: 202109

REACTIONS (6)
  - Somnolence [Recovered/Resolved]
  - Nausea [Recovered/Resolved]
  - Balance disorder [Recovered/Resolved]
  - Malaise [Recovered/Resolved]
  - Dizziness [Recovered/Resolved]
  - Urine flow decreased [Recovered/Resolved]

NARRATIVE: CASE EVENT DATE: 20210904
